FAERS Safety Report 7499780-0 (Version None)
Quarter: 2011Q2

REPORT INFORMATION
  Report Type: 
  Country: None (occurrence: None)
  Receive Date: 20110524
  Receipt Date: 20110516
  Transmission Date: 20111010
  Serious: Yes (Hospitalization)
  Sender: FDA-Public Use
  Company Number: US-ACTELION-A-US2011-46989

PATIENT

DRUGS (19)
  1. MULTI-VITAMIN [Concomitant]
  2. LASIX [Concomitant]
  3. TRACLEER [Suspect]
     Dosage: 62.5 MG, BID
     Route: 048
     Dates: start: 20090301
  4. REVATIO [Concomitant]
  5. ADVAIR DISKUS 100/50 [Concomitant]
  6. ARANESP [Concomitant]
  7. VICODIN [Concomitant]
  8. DEXAMETHASONE [Concomitant]
  9. TRACLEER [Suspect]
     Dosage: 125 MG, BID
     Route: 048
     Dates: start: 20090401
  10. POTASSIUM CHLORIDE [Concomitant]
  11. TRACLEER [Suspect]
     Indication: PULMONARY ARTERIAL HYPERTENSION
     Dosage: 125 MG, BID
     Route: 048
     Dates: start: 20090304
  12. GLIPIZIDE [Concomitant]
  13. PROTONIX [Concomitant]
  14. SPIRONOLACTONE [Concomitant]
  15. LYRICA [Concomitant]
  16. WARFARIN SODIUM [Concomitant]
  17. VELCADE [Concomitant]
  18. REVLIMID [Concomitant]
  19. THALOMID [Concomitant]

REACTIONS (3)
  - DEVICE RELATED SEPSIS [None]
  - CELLULITIS [None]
  - PYREXIA [None]
